FAERS Safety Report 8848287 (Version 1)
Quarter: 2012Q4

REPORT INFORMATION
  Report Type: 
  Country: US (occurrence: US)
  Receive Date: 20121018
  Receipt Date: 20121018
  Transmission Date: 20130627
  Serious: Yes (Hospitalization)
  Sender: FDA-Public Use
  Company Number: US-B.I. PHARMACEUTICALS,INC./RIDGEFIELD-2012-BP-25413BP

PATIENT
  Age: 60 Year
  Sex: Female

DRUGS (1)
  1. PRADAXA [Suspect]

REACTIONS (3)
  - Pneumonia [Not Recovered/Not Resolved]
  - Rectal haemorrhage [Recovered/Resolved]
  - Gingival bleeding [Recovered/Resolved]
